FAERS Safety Report 7719157-X (Version None)
Quarter: 2011Q3

REPORT INFORMATION
  Report Type: 
  Country: None (occurrence: None)
  Receive Date: 20110830
  Receipt Date: 20110823
  Transmission Date: 20111222
  Serious: Yes (Other)
  Sender: FDA-Public Use
  Company Number: IT-CELGENEUS-083-21880-11080672

PATIENT
  Sex: Male

DRUGS (6)
  1. SELEPARINA [Concomitant]
     Dosage: 1.6 DOSAGE FORMS
     Route: 065
  2. LEXOTAN [Concomitant]
     Route: 065
  3. DURAGESIC-100 [Concomitant]
     Dosage: 600 MICROGRAM
     Route: 065
  4. REVLIMID [Suspect]
     Indication: MULTIPLE MYELOMA
     Dosage: 10 MILLIGRAM
     Route: 048
     Dates: start: 20090426, end: 20101027
  5. OMEPRAZOLE [Concomitant]
     Dosage: 20 MILLIGRAM
     Route: 065
  6. GABAPENTINE [Concomitant]
     Dosage: 300 MILLIGRAM
     Route: 065

REACTIONS (1)
  - LUNG ADENOCARCINOMA METASTATIC [None]
